FAERS Safety Report 8543531-5 (Version None)
Quarter: 2012Q2

REPORT INFORMATION
  Report Type: 
  Country: None (occurrence: None)
  Receive Date: 20120412
  Receipt Date: 20090219
  Transmission Date: 20120825
  Serious: Yes (Other)
  Sender: FDA-Public Use
  Company Number: PHEH2007US03266

PATIENT
  Age: 53 Year
  Sex: Male

DRUGS (5)
  1. EPOGEN [Concomitant]
  2. ZOMETA [Suspect]
     Dates: start: 20020101, end: 20050801
  3. DIFLUCAN [Concomitant]
  4. AREDIA [Suspect]
     Dosage: 90 MG
     Dates: start: 20011201
  5. PROTONIX [Concomitant]

REACTIONS (11)
  - DENTAL CARIES [None]
  - OSTEOARTHRITIS [None]
  - SWELLING [None]
  - ANXIETY [None]
  - GENERAL PHYSICAL HEALTH DETERIORATION [None]
  - PAIN [None]
  - DECREASED INTEREST [None]
  - TOOTH EXTRACTION [None]
  - OSTEONECROSIS [None]
  - TOOTH FRACTURE [None]
  - IMPAIRED HEALING [None]
